FAERS Safety Report 5925040-2 (Version None)
Quarter: 2008Q3

REPORT INFORMATION
  Report Type: 
  Country: None (occurrence: None)
  Receive Date: 20080909
  Receipt Date: 20070824
  Transmission Date: 20090109
  Serious: Yes (Other)
  Sender: FDA-Public Use
  Company Number: 163-20785-07081665

PATIENT
  Age: 57 Year
  Sex: Male

DRUGS (11)
  1. THALOMID [Suspect]
     Indication: AMYLOIDOSIS
     Dosage: DAILY, ORAL
     Route: 048
     Dates: start: 20060316, end: 20070101
  2. DECADRON [Suspect]
     Indication: AMYLOIDOSIS
     Dates: start: 20060316
  3. FUROSEMIDE [Concomitant]
  4. METOLAZONE [Concomitant]
  5. WARFARIN SODIUM [Concomitant]
  6. SPIRONOLACTONE [Concomitant]
  7. LOVASTATIN [Concomitant]
  8. K-TAB [Concomitant]
  9. TEMAZEPAM [Concomitant]
  10. ALBUTEROL [Concomitant]
  11. ALLOPURINOL [Concomitant]

REACTIONS (1)
  - PULMONARY EMBOLISM [None]
